FAERS Safety Report 7360308-7 (Version None)
Quarter: 2011Q1

REPORT INFORMATION
  Report Type: 
  Country: None (occurrence: None)
  Receive Date: 20110318
  Receipt Date: 20110308
  Transmission Date: 20110831
  Serious: No
  Sender: FDA-Public Use
  Company Number: US-JNJFOC-20110304874

PATIENT
  Sex: Female
  Weight: 108.86 kg

DRUGS (4)
  1. PREVACID [Concomitant]
     Indication: GASTROOESOPHAGEAL REFLUX DISEASE
     Route: 048
  2. ALBUTEROL [Concomitant]
     Indication: ASTHMA
     Route: 055
  3. HYDROCODONE [Concomitant]
     Indication: BREAKTHROUGH PAIN
     Route: 048
  4. DURAGESIC-50 [Suspect]
     Indication: PAIN
     Route: 062

REACTIONS (5)
  - WITHDRAWAL SYNDROME [None]
  - NERVOUSNESS [None]
  - HYPERHIDROSIS [None]
  - INAPPROPRIATE SCHEDULE OF DRUG ADMINISTRATION [None]
  - PAIN IN EXTREMITY [None]
